FAERS Safety Report 12392963 (Version 1)
Quarter: 2016Q2

REPORT INFORMATION
  Report Type: Spontaneous
  Country: US (occurrence: None)
  Receive Date: 20160520
  Receipt Date: 20160520
  Transmission Date: 20160815
  Serious: Yes (Hospitalization)
  Sender: FDA-Public Use
  Company Number: None

PATIENT
  Age: 59 Year
  Sex: Male

DRUGS (9)
  1. TAMSULOSIN [Concomitant]
     Active Substance: TAMSULOSIN
  2. AZITHROMYCIN ANHYDROUS. [Concomitant]
     Active Substance: AZITHROMYCIN ANHYDROUS
  3. TYLENOL [Concomitant]
     Active Substance: ACETAMINOPHEN
  4. NAPROXEN. [Concomitant]
     Active Substance: NAPROXEN
  5. SPRYCEL [Suspect]
     Active Substance: DASATINIB
     Indication: LEUKAEMIA
     Route: 048
     Dates: start: 20160421, end: 20160501
  6. PREDNISONE. [Concomitant]
     Active Substance: PREDNISONE
  7. FERROUS SULF [Concomitant]
  8. PROMETH/COD [Concomitant]
  9. DUTASTERIDE. [Concomitant]
     Active Substance: DUTASTERIDE

REACTIONS (2)
  - Asthma [None]
  - Blood pressure increased [None]

NARRATIVE: CASE EVENT DATE: 20160501
